FAERS Safety Report 8005295-3 (Version None)
Quarter: 2011Q4

REPORT INFORMATION
  Report Type: 
  Country: None (occurrence: None)
  Receive Date: 20111223
  Receipt Date: 20111219
  Transmission Date: 20120403
  Serious: Yes (Other)
  Sender: FDA-Public Use
  Company Number: PHHY2011FR111104

PATIENT
  Age: 78 Year
  Sex: Male

DRUGS (2)
  1. FLECAINIDE ACETATE [Concomitant]
  2. ONBREZ [Suspect]
     Dosage: 150 UG, DAILY
     Dates: start: 20111201

REACTIONS (1)
  - TACHYARRHYTHMIA [None]
